FAERS Safety Report 5639057-9 (Version None)
Quarter: 2008Q1

REPORT INFORMATION
  Report Type: 
  Country: None (occurrence: None)
  Receive Date: 20080226
  Receipt Date: 20080213
  Transmission Date: 20080703
  Serious: Yes (Hospitalization)
  Sender: FDA-Public Use
  Company Number: US-ELI_LILLY_AND_COMPANY-US200802003239

PATIENT
  Age: 78 Year
  Sex: Male
  Weight: 81.633 kg

DRUGS (4)
  1. CYMBALTA [Suspect]
     Indication: POST HERPETIC NEURALGIA
     Dosage: 30 MG, DAILY (1/D)
     Route: 048
     Dates: start: 20071001, end: 20071016
  2. CYMBALTA [Suspect]
     Dosage: 60 MG, DAILY (1/D)
     Route: 048
     Dates: start: 20071017, end: 20071113
  3. CYMBALTA [Suspect]
     Dosage: 30 MG, UNK
  4. ZOLOFT [Concomitant]

REACTIONS (9)
  - ABNORMAL DREAMS [None]
  - ANOREXIA [None]
  - DISORIENTATION [None]
  - DIZZINESS [None]
  - DYSARTHRIA [None]
  - GAIT DISTURBANCE [None]
  - IRRITABILITY [None]
  - MUSCULAR WEAKNESS [None]
  - SOMNOLENCE [None]
